FAERS Safety Report 19503143 (Version 1)
Quarter: 2021Q3

REPORT INFORMATION
  Report Type: Spontaneous
  Country: FR (occurrence: FR)
  Receive Date: 20210708
  Receipt Date: 20210708
  Transmission Date: 20211014
  Serious: Yes (Hospitalization, Other)
  Sender: FDA-Public Use
  Company Number: FR-AUROBINDO-AUR-APL-2021-028538

PATIENT
  Age: 37 Year
  Sex: Female
  Weight: 71 kg

DRUGS (2)
  1. IRINOTECAN [Suspect]
     Active Substance: IRINOTECAN
     Indication: RECTAL ADENOCARCINOMA
     Dosage: UNK
     Route: 041
     Dates: start: 20210408, end: 20210408
  2. OXALIPLATIN. [Suspect]
     Active Substance: OXALIPLATIN
     Indication: RECTAL ADENOCARCINOMA
     Dosage: 160 MILLIGRAM, 15 DAY
     Route: 041
     Dates: start: 20210408, end: 20210408

REACTIONS (3)
  - Anaphylactic shock [Recovered/Resolved]
  - Large intestine infection [Recovered/Resolved]
  - Febrile neutropenia [Recovered/Resolved]

NARRATIVE: CASE EVENT DATE: 20210408
